FAERS Safety Report 7408409-9 (Version None)
Quarter: 2011Q2

REPORT INFORMATION
  Report Type: 
  Country: None (occurrence: None)
  Receive Date: 20110412
  Receipt Date: 20110331
  Transmission Date: 20111010
  Serious: Yes (Death)
  Sender: FDA-Public Use
  Company Number: US-MYLANLABS-2011S1005609

PATIENT
  Age: 56 Year
  Sex: Female
  Weight: 68.04 kg

DRUGS (11)
  1. GABAPENTIN [Suspect]
  2. CLONAZEPAM [Suspect]
  3. METHOCARBAMOL [Concomitant]
  4. CITALOPRAM [Suspect]
  5. ALPRAZOLAM [Concomitant]
  6. LEXAPRO [Concomitant]
  7. TEMAZEPAM [Concomitant]
  8. FENTANYL-100 [Suspect]
     Indication: PAIN
  9. CYCLOBENZAPRINE [Suspect]
  10. LYRICA [Concomitant]
  11. TRAMADOL [Suspect]

REACTIONS (3)
  - COMPLETED SUICIDE [None]
  - OVERDOSE [None]
  - TOXICITY TO VARIOUS AGENTS [None]
